FAERS Safety Report 17579871 (Version 6)
Quarter: 2021Q4

REPORT INFORMATION
  Report Type: Report from Study
  Country: US (occurrence: US)
  Receive Date: 20200325
  Receipt Date: 20211027
  Transmission Date: 20220303
  Serious: Yes (Hospitalization, Other)
  Sender: FDA-Public Use
  Company Number: US-TAKEDA-2019TUS069289

PATIENT
  Age: 58 Year
  Sex: Female

DRUGS (18)
  1. PONATINIB [Suspect]
     Active Substance: PONATINIB
     Indication: Chronic myeloid leukaemia
     Dosage: 15 MILLIGRAM, QD
     Route: 048
     Dates: start: 201910
  2. CLARITIN [Concomitant]
     Active Substance: LORATADINE
     Dosage: 10 MILLIGRAM
     Route: 065
  3. LEVOTHYROXINE SODIUM [Concomitant]
     Active Substance: LEVOTHYROXINE SODIUM
     Dosage: UNK
     Route: 065
  4. OXYCONTIN [Concomitant]
     Active Substance: OXYCODONE HYDROCHLORIDE
     Dosage: 80 MILLIGRAM
     Route: 065
  5. DILAUDID [Concomitant]
     Active Substance: HYDROMORPHONE HYDROCHLORIDE
     Dosage: UNK
     Route: 065
  6. GABAPENTIN [Concomitant]
     Active Substance: GABAPENTIN
     Dosage: UNK
     Route: 065
  7. METHYLPHENIDATE HYDROCHLORIDE [Concomitant]
     Active Substance: METHYLPHENIDATE HYDROCHLORIDE
     Dosage: UNK
     Route: 065
  8. LORAZEPAM [Concomitant]
     Active Substance: LORAZEPAM
     Dosage: 1 MILLIGRAM
     Route: 065
  9. METOPROLOL TARTRATE [Concomitant]
     Active Substance: METOPROLOL TARTRATE
     Dosage: 50 MILLIGRAM
     Route: 065
  10. METOPROLOL TARTRATE [Concomitant]
     Active Substance: METOPROLOL TARTRATE
     Dosage: 50 MILLIGRAM
     Route: 065
  11. LASIX [Concomitant]
     Active Substance: FUROSEMIDE
     Dosage: 20 MILLIGRAM
     Route: 065
  12. FUROSEMIDE [Concomitant]
     Active Substance: FUROSEMIDE
     Dosage: 20 MILLIGRAM
     Route: 065
  13. DULOXETINE HYDROCHLORIDE [Concomitant]
     Active Substance: DULOXETINE HYDROCHLORIDE
     Dosage: UNK
     Route: 065
  14. RANITIDINE HYDROCHLORIDE [Concomitant]
     Active Substance: RANITIDINE HYDROCHLORIDE
     Dosage: UNK
     Route: 065
  15. ONDANSETRON [Concomitant]
     Active Substance: ONDANSETRON
     Dosage: 4 MILLIGRAM
     Route: 065
  16. NYSTATIN [Concomitant]
     Active Substance: NYSTATIN
     Dosage: UNK
     Route: 065
  17. AMLODIPINE BESYLATE [Concomitant]
     Active Substance: AMLODIPINE BESYLATE
     Dosage: UNK
     Route: 065
  18. KEPPRA [Concomitant]
     Active Substance: LEVETIRACETAM
     Dosage: UNK

REACTIONS (13)
  - Spinal cord neoplasm [Unknown]
  - Seizure [Unknown]
  - Somnolence [Unknown]
  - Skin atrophy [Unknown]
  - Alopecia [Unknown]
  - Insomnia [Unknown]
  - Blood pressure increased [Unknown]
  - Dry skin [Unknown]
  - Headache [Unknown]
  - Muscle spasms [Unknown]
  - Arthralgia [Unknown]
  - Pain in extremity [Unknown]
  - Abdominal pain [Unknown]

NARRATIVE: CASE EVENT DATE: 20200201
